FAERS Safety Report 8078529-7 (Version None)
Quarter: 2012Q1

REPORT INFORMATION
  Report Type: 
  Country: None (occurrence: None)
  Receive Date: 20120124
  Receipt Date: 20120116
  Transmission Date: 20120608
  Serious: Yes (Death)
  Sender: FDA-Public Use
  Company Number: DSA_48886_2012

PATIENT
  Sex: Female

DRUGS (1)
  1. XWENAZINE 12.5 MG (NOT SPECIFIED) [Suspect]
     Indication: HUNTINGTON'S DISEASE
     Dosage: 12.5 MG, QD, ORAL
     Route: 048
     Dates: start: 20110401, end: 20120109

REACTIONS (1)
  - DEATH [None]
